FAERS Safety Report 20100339 (Version 1)
Quarter: 2021Q4

REPORT INFORMATION
  Report Type: Spontaneous
  Country: US (occurrence: US)
  Receive Date: 20211123
  Receipt Date: 20211123
  Transmission Date: 20220303
  Serious: No
  Sender: FDA-Public Use
  Company Number: US-AMGEN-USASP2021181269

PATIENT
  Age: 54 Year
  Sex: Female

DRUGS (2)
  1. OTEZLA [Suspect]
     Active Substance: APREMILAST
     Indication: Psoriatic arthropathy
     Dosage: STARTER PACK
     Route: 065
     Dates: start: 202111
  2. OTEZLA [Suspect]
     Active Substance: APREMILAST
     Dosage: 30 MILLIGRAM, BID
     Route: 065
     Dates: start: 20211111

REACTIONS (8)
  - Diarrhoea [Unknown]
  - Nausea [Unknown]
  - Tachycardia [Unknown]
  - Nervousness [Unknown]
  - Feeling hot [Unknown]
  - Blood pressure increased [Unknown]
  - Tinnitus [Not Recovered/Not Resolved]
  - Headache [Unknown]

NARRATIVE: CASE EVENT DATE: 20211101
